FAERS Safety Report 7312750-8 (Version None)
Quarter: 2011Q1

REPORT INFORMATION
  Report Type: 
  Country: None (occurrence: None)
  Receive Date: 20110224
  Receipt Date: 20110124
  Transmission Date: 20110831
  Serious: Yes (Hospitalization, Disabling, Other)
  Sender: FDA-Public Use
  Company Number: PHHY2010AU71264

PATIENT
  Sex: Male
  Weight: 111 kg

DRUGS (5)
  1. CLOZARIL [Suspect]
     Indication: SCHIZOPHRENIA
     Dosage: UNK
     Dates: start: 20000101
  2. CLOZARIL [Suspect]
     Dosage: 500 MG, QD
     Route: 048
     Dates: start: 20091123, end: 20101012
  3. CLOZARIL [Suspect]
     Dosage: UNK
     Route: 048
     Dates: start: 20091123, end: 20101012
  4. FLUPENTIXOL [Concomitant]
     Indication: SCHIZOPHRENIA
     Dosage: 100 MG, BIW
     Route: 030
     Dates: end: 20100803
  5. VALPROATE BISMUTH [Concomitant]
     Indication: SCHIZOPHRENIA
     Dosage: 500 MG, BID
     Dates: start: 20091110, end: 20100126

REACTIONS (10)
  - APNOEA [None]
  - CARDIOMYOPATHY [None]
  - SPEECH DISORDER [None]
  - SALIVARY HYPERSECRETION [None]
  - UPPER RESPIRATORY TRACT CONGESTION [None]
  - INSOMNIA [None]
  - DISCOMFORT [None]
  - DYSPNOEA [None]
  - PSYCHOTIC DISORDER [None]
  - WEIGHT INCREASED [None]
